FAERS Safety Report 14993328 (Version 1)
Quarter: 2018Q2

REPORT INFORMATION
  Report Type: Spontaneous
  Country: CZ (occurrence: CZ)
  Receive Date: 20180610
  Receipt Date: 20180610
  Transmission Date: 20180711
  Serious: Yes (Life-Threatening)
  Sender: FDA-Public Use
  Company Number: PHHY2018CZ017132

PATIENT
  Age: 59 Year
  Sex: Male

DRUGS (3)
  1. CEFTRIAXONE. [Suspect]
     Active Substance: CEFTRIAXONE
     Indication: TICK-BORNE VIRAL ENCEPHALITIS
     Route: 065
  2. ACYCLOVIR. [Suspect]
     Active Substance: ACYCLOVIR
     Indication: TICK-BORNE VIRAL ENCEPHALITIS
     Route: 065
  3. MANNITOL. [Suspect]
     Active Substance: MANNITOL
     Indication: PRODUCT USED FOR UNKNOWN INDICATION
     Route: 065

REACTIONS (11)
  - Tachypnoea [Unknown]
  - Tick-borne viral encephalitis [Unknown]
  - Tachycardia [Unknown]
  - Quadriparesis [Unknown]
  - Epilepsy [Unknown]
  - Delusion [Unknown]
  - Dysphagia [Not Recovered/Not Resolved]
  - Depressed level of consciousness [Recovered/Resolved]
  - Organic brain syndrome [Unknown]
  - Altered state of consciousness [Unknown]
  - Condition aggravated [Unknown]
